FAERS Safety Report 13908307 (Version 2)
Quarter: 2018Q2

REPORT INFORMATION
  Report Type: Report from Study
  Country: BR (occurrence: BR)
  Receive Date: 20170826
  Receipt Date: 20180516
  Transmission Date: 20180711
  Serious: Yes (Other)
  Sender: FDA-Public Use
  Company Number: BR-ROCHE-1982812

PATIENT
  Sex: Female
  Weight: 75 kg

DRUGS (3)
  1. XOLAIR [Suspect]
     Active Substance: OMALIZUMAB
     Route: 058
     Dates: start: 20170706
  2. XOLAIR [Suspect]
     Active Substance: OMALIZUMAB
     Dosage: 1 DF
     Route: 058
     Dates: start: 201803, end: 201803
  3. XOLAIR [Suspect]
     Active Substance: OMALIZUMAB
     Indication: ASTHMA
     Dosage: 1 DF
     Route: 058

REACTIONS (2)
  - Pneumonia [Unknown]
  - Feeling abnormal [Unknown]
